FAERS Safety Report 19753675 (Version 7)
Quarter: 2022Q2

REPORT INFORMATION
  Report Type: Report from Study
  Country: IL (occurrence: IL)
  Receive Date: 20210826
  Receipt Date: 20220526
  Transmission Date: 20220721
  Serious: Yes (Hospitalization, Other)
  Sender: FDA-Public Use
  Company Number: IL-ABBVIE-21K-082-4054569-00

PATIENT
  Age: 77 Year
  Sex: Male
  Weight: 112 kg

DRUGS (45)
  1. VENETOCLAX [Suspect]
     Active Substance: VENETOCLAX
     Indication: Acute myeloid leukaemia
     Route: 048
     Dates: start: 20210322, end: 20210323
  2. VENETOCLAX [Suspect]
     Active Substance: VENETOCLAX
     Route: 048
     Dates: start: 20210331, end: 20210331
  3. VENETOCLAX [Suspect]
     Active Substance: VENETOCLAX
     Route: 048
     Dates: start: 20210401, end: 20210401
  4. VENETOCLAX [Suspect]
     Active Substance: VENETOCLAX
     Route: 048
     Dates: start: 20210402, end: 20210608
  5. VENETOCLAX [Suspect]
     Active Substance: VENETOCLAX
     Route: 048
     Dates: start: 20210610, end: 20210615
  6. VENETOCLAX [Suspect]
     Active Substance: VENETOCLAX
     Route: 048
     Dates: start: 20210603, end: 20210709
  7. VENETOCLAX [Suspect]
     Active Substance: VENETOCLAX
     Route: 048
     Dates: start: 20210815, end: 20210828
  8. VENETOCLAX [Suspect]
     Active Substance: VENETOCLAX
     Route: 048
     Dates: start: 20210919, end: 20210930
  9. VENETOCLAX [Suspect]
     Active Substance: VENETOCLAX
     Route: 048
     Dates: start: 20211031
  10. AZACITIDINE [Suspect]
     Active Substance: AZACITIDINE
     Indication: Acute myeloid leukaemia
     Route: 058
     Dates: start: 20210322, end: 20210323
  11. AZACITIDINE [Suspect]
     Active Substance: AZACITIDINE
     Route: 058
     Dates: start: 20210331, end: 20210401
  12. AZACITIDINE [Suspect]
     Active Substance: AZACITIDINE
     Route: 058
     Dates: start: 20210404, end: 20210408
  13. AZACITIDINE [Suspect]
     Active Substance: AZACITIDINE
     Dosage: CYCLE 1
     Route: 058
     Dates: start: 20210428, end: 20210429
  14. AZACITIDINE [Suspect]
     Active Substance: AZACITIDINE
     Route: 058
     Dates: start: 20210502, end: 20210506
  15. AZACITIDINE [Suspect]
     Active Substance: AZACITIDINE
     Dosage: CYCLE 2
     Route: 058
     Dates: start: 20210526, end: 20210527
  16. AZACITIDINE [Suspect]
     Active Substance: AZACITIDINE
     Route: 058
     Dates: start: 20210530, end: 20210602
  17. AZACITIDINE [Suspect]
     Active Substance: AZACITIDINE
     Dosage: CYCLE 3
     Route: 058
     Dates: start: 20210630, end: 20210701
  18. AZACITIDINE [Suspect]
     Active Substance: AZACITIDINE
     Dosage: CYCLE 3
     Route: 058
     Dates: start: 20210704, end: 20210707
  19. AZACITIDINE [Suspect]
     Active Substance: AZACITIDINE
     Dosage: CYCLE 3
     Route: 058
     Dates: start: 20210708, end: 20210708
  20. AZACITIDINE [Suspect]
     Active Substance: AZACITIDINE
     Dosage: CYCLE 4
     Route: 058
     Dates: start: 20210815, end: 20210815
  21. AZACITIDINE [Suspect]
     Active Substance: AZACITIDINE
     Dosage: CYCLE 4
     Route: 058
     Dates: start: 20210816, end: 20210816
  22. AZACITIDINE [Suspect]
     Active Substance: AZACITIDINE
     Dosage: CYCLE 4
     Route: 058
     Dates: start: 20210817, end: 20210817
  23. AZACITIDINE [Suspect]
     Active Substance: AZACITIDINE
     Dosage: CYCLE 4
     Route: 058
     Dates: start: 20210818, end: 20210818
  24. AZACITIDINE [Suspect]
     Active Substance: AZACITIDINE
     Dosage: CYCLE 4
     Route: 058
     Dates: start: 20210819, end: 20210819
  25. AZACITIDINE [Suspect]
     Active Substance: AZACITIDINE
     Dosage: CYCLE 5
     Route: 058
     Dates: start: 20210922, end: 20210922
  26. AZACITIDINE [Suspect]
     Active Substance: AZACITIDINE
     Dosage: CYCLE 5
     Route: 058
     Dates: start: 20210923, end: 20210923
  27. AZACITIDINE [Suspect]
     Active Substance: AZACITIDINE
     Dosage: CYCLE 5
     Route: 058
     Dates: start: 20210925, end: 20210925
  28. AZACITIDINE [Suspect]
     Active Substance: AZACITIDINE
     Dosage: CYCLE 5
     Route: 058
     Dates: start: 20210929, end: 20210929
  29. AZACITIDINE [Suspect]
     Active Substance: AZACITIDINE
     Dosage: CYCLE 5
     Route: 058
     Dates: start: 20210930, end: 20210930
  30. AZACITIDINE [Suspect]
     Active Substance: AZACITIDINE
     Dosage: CYCLE 6 INTERRUPTION DUE TO AE
     Route: 058
     Dates: start: 20211031, end: 20211104
  31. AZACITIDINE [Suspect]
     Active Substance: AZACITIDINE
     Dosage: CYCLE 7
     Route: 058
     Dates: start: 20211205, end: 20211209
  32. AZACITIDINE [Suspect]
     Active Substance: AZACITIDINE
     Dosage: CYCLE 8
     Route: 058
     Dates: start: 20220109, end: 20220113
  33. AZACITIDINE [Suspect]
     Active Substance: AZACITIDINE
     Dosage: CYCLE 9
     Route: 058
     Dates: start: 20220206, end: 20220210
  34. LYRICA [Concomitant]
     Active Substance: PREGABALIN
     Indication: Neuralgia
  35. OXOPURIN [Concomitant]
     Indication: Neuralgia
  36. RAMIPRIL [Concomitant]
     Active Substance: RAMIPRIL
     Indication: Hypertension
  37. ALFUZOSIN [Concomitant]
     Active Substance: ALFUZOSIN
     Indication: Hypertension
  38. BISACODYL [Concomitant]
     Active Substance: BISACODYL
     Indication: Constipation
  39. NORMALAX [Concomitant]
     Indication: Constipation
  40. MIRABEGRON [Concomitant]
     Active Substance: MIRABEGRON
     Indication: Bladder disorder
  41. BROTIZOLAM [Concomitant]
     Active Substance: BROTIZOLAM
     Indication: Insomnia
  42. DEGLUDEC [Concomitant]
     Indication: Diabetes mellitus
  43. GLUCOPHAGE [Concomitant]
     Active Substance: METFORMIN HYDROCHLORIDE
     Indication: Diabetes mellitus
  44. CARTIA [Concomitant]
     Indication: Hypertension
     Dates: end: 20210616
  45. ALLOPURINOL [Concomitant]
     Active Substance: ALLOPURINOL
     Indication: Prophylaxis
     Dates: start: 20210316, end: 20210316

REACTIONS (20)
  - Pancytopenia [Not Recovered/Not Resolved]
  - Drug hypersensitivity [Recovered/Resolved]
  - Neutropenia [Recovered/Resolved]
  - Asthenia [Recovered/Resolved]
  - Paraesthesia [Recovered/Resolved]
  - Cough [Recovered/Resolved]
  - Blood alkaline phosphatase increased [Not Recovered/Not Resolved]
  - Diabetic neuropathy [Not Recovered/Not Resolved]
  - Pain in extremity [Not Recovered/Not Resolved]
  - Bone pain [Recovered/Resolved]
  - Pain in extremity [Recovered/Resolved]
  - Skin lesion [Not Recovered/Not Resolved]
  - Constipation [Recovered/Resolved]
  - Neutropenia [Not Recovered/Not Resolved]
  - Cholangitis [Recovered/Resolved]
  - Biliary tract infection [Recovered/Resolved]
  - Bile duct stenosis [Recovered/Resolved]
  - Asthenia [Not Recovered/Not Resolved]
  - Hepatitis [Recovered/Resolved]
  - Hepatitis [Not Recovered/Not Resolved]

NARRATIVE: CASE EVENT DATE: 20210330
